FAERS Safety Report 7318630-6 (Version None)
Quarter: 2011Q1

REPORT INFORMATION
  Report Type: 
  Country: None (occurrence: None)
  Receive Date: 20110228
  Receipt Date: 20110215
  Transmission Date: 20110831
  Serious: Yes (Hospitalization)
  Sender: FDA-Public Use
  Company Number: JP-JNJFOC-20110205236

PATIENT
  Sex: Female

DRUGS (15)
  1. MYSTAN [Concomitant]
     Indication: LENNOX-GASTAUT SYNDROME
     Route: 048
  2. TOPIRAMATE [Suspect]
     Indication: LENNOX-GASTAUT SYNDROME
     Route: 048
  3. TOPIRAMATE [Suspect]
     Route: 048
  4. GABAPEN [Concomitant]
     Route: 048
  5. GABAPEN [Concomitant]
     Route: 048
  6. EXCEGRAN [Concomitant]
     Indication: LENNOX-GASTAUT SYNDROME
     Route: 048
  7. GABAPEN [Concomitant]
     Route: 048
  8. GABAPEN [Concomitant]
     Route: 048
  9. TOPIRAMATE [Suspect]
     Route: 048
  10. TOPIRAMATE [Suspect]
     Route: 048
  11. GABAPEN [Concomitant]
     Indication: LENNOX-GASTAUT SYNDROME
     Route: 048
  12. METHYLPREDNISOLONE SODIUM SUCCINATE [Concomitant]
     Indication: STATUS EPILEPTICUS
     Route: 065
  13. METHYLPREDNISOLONE SODIUM SUCCINATE [Concomitant]
     Route: 065
  14. DEPAKENE [Concomitant]
     Indication: LENNOX-GASTAUT SYNDROME
     Route: 048
  15. METHYLPREDNISOLONE SODIUM SUCCINATE [Concomitant]
     Route: 065

REACTIONS (1)
  - STATUS EPILEPTICUS [None]
